FAERS Safety Report 6397434-5 (Version None)
Quarter: 2009Q4

REPORT INFORMATION
  Report Type: 
  Country: None (occurrence: None)
  Receive Date: 20091012
  Receipt Date: 20091007
  Transmission Date: 20100525
  Serious: Yes (Other)
  Sender: FDA-Public Use
  Company Number: PHHO2009ES12345

PATIENT
  Sex: Female
  Weight: 85 kg

DRUGS (3)
  1. ZOLEDRONIC ACID [Suspect]
     Indication: METASTASES TO BONE
     Dosage: 4 MG, MONTHLY
     Route: 042
     Dates: start: 20081028, end: 20090708
  2. SUTENT [Concomitant]
     Indication: BREAST CANCER
     Dosage: 37.5 MG, DAILY
     Route: 048
     Dates: start: 20090213
  3. OMEPRAZOLE [Concomitant]
     Dosage: UNK
     Dates: start: 20090302

REACTIONS (2)
  - OSTEONECROSIS [None]
  - PAIN IN JAW [None]
